FAERS Safety Report 15247377 (Version 2)
Quarter: 2018Q3

REPORT INFORMATION
  Report Type: Spontaneous
  Country: US (occurrence: US)
  Receive Date: 20180807
  Receipt Date: 20180820
  Transmission Date: 20181010
  Serious: Yes (Life-Threatening, Other)
  Sender: FDA-Public Use
  Company Number: US-AUROBINDO-AUR-APL-2018-038138

PATIENT
  Sex: Male

DRUGS (3)
  1. FOSPHENYTOIN [Concomitant]
     Active Substance: FOSPHENYTOIN
     Indication: CONVULSION NEONATAL
     Dosage: UNK
     Route: 065
  2. TOPIRAMATE. [Suspect]
     Active Substance: TOPIRAMATE
     Dosage: 5 MILLIGRAM/KILOGRAM, (5 MGLKGLDAY ON DAY 2)
     Route: 048
  3. TOPIRAMATE. [Suspect]
     Active Substance: TOPIRAMATE
     Indication: CONVULSION NEONATAL
     Dosage: 10 MILLIGRAM/KILOGRAM (ON DAY1)
     Route: 048

REACTIONS (1)
  - Necrotising colitis [Unknown]
